FAERS Safety Report 16799635 (Version 1)
Quarter: 2019Q3

REPORT INFORMATION
  Report Type: Report from Study
  Country: TH (occurrence: TH)
  Receive Date: 20190912
  Receipt Date: 20190912
  Transmission Date: 20191005
  Serious: Yes (Hospitalization)
  Sender: FDA-Public Use
  Company Number: TH-JNJFOC-20190906192

PATIENT
  Sex: Female

DRUGS (2)
  1. DARZALEX [Suspect]
     Active Substance: DARATUMUMAB
     Indication: PLASMA CELL MYELOMA RECURRENT
     Route: 065
     Dates: start: 20190815, end: 20190829
  2. VELCADE [Suspect]
     Active Substance: BORTEZOMIB
     Indication: PLASMA CELL MYELOMA RECURRENT
     Route: 065
     Dates: start: 20190815, end: 20190826

REACTIONS (2)
  - Infection [Recovering/Resolving]
  - Immunodeficiency [Recovering/Resolving]
